FAERS Safety Report 26159994 (Version 2)
Quarter: 2025Q4

REPORT INFORMATION
  Report Type: Spontaneous
  Country: QA (occurrence: QA)
  Receive Date: 20251216
  Receipt Date: 20251224
  Transmission Date: 20260118
  Serious: Yes (Life-Threatening, Hospitalization, Other)
  Sender: ALKEM
  Company Number: QA-ALKEM LABORATORIES LIMITED-QA-ALKEM-2025-13370

PATIENT
  Age: 75 Year
  Sex: Female

DRUGS (1)
  1. TIZANIDINE [Suspect]
     Active Substance: TIZANIDINE
     Indication: Pain in extremity
     Dosage: 24 MILLIGRAM
     Route: 048

REACTIONS (8)
  - Mental status changes [Recovered/Resolved]
  - Depressed level of consciousness [Recovered/Resolved]
  - Bradycardia [Recovered/Resolved]
  - Hypotension [Recovered/Resolved]
  - Overdose [Unknown]
  - Self-medication [Unknown]
  - Depression [Recovered/Resolved]
  - Dizziness [Recovered/Resolved]
